FAERS Safety Report 19668798 (Version 1)
Quarter: 2021Q3

REPORT INFORMATION
  Report Type: Spontaneous
  Country: IN (occurrence: IN)
  Receive Date: 20210806
  Receipt Date: 20210806
  Transmission Date: 20211014
  Serious: Yes (Hospitalization)
  Sender: FDA-Public Use
  Company Number: IN-ENDO PHARMACEUTICALS INC-2021-010760

PATIENT
  Age: 40 Year
  Sex: Male

DRUGS (8)
  1. THIAMINE. [Concomitant]
     Active Substance: THIAMINE
     Indication: ALCOHOL DETOXIFICATION
     Dosage: UNK UNKNOWN, UNKNOWN
     Route: 048
  2. QUETIAPINE. [Concomitant]
     Active Substance: QUETIAPINE
     Indication: SLEEP DISORDER
     Dosage: 50 MG, DAILY
     Route: 065
  3. BENZODIAZEPINES [Concomitant]
     Active Substance: BENZODIAZEPINE
     Dosage: UNK UNKNOWN, TAPERING DOSE
     Route: 065
  4. BENZODIAZEPINES [Concomitant]
     Active Substance: BENZODIAZEPINE
     Indication: ALCOHOL DETOXIFICATION
     Dosage: UNK UNKNOWN, UNKNOWN
     Route: 065
  5. DISULFIRAM. [Suspect]
     Active Substance: DISULFIRAM
     Dosage: 250 MG, DAILY (DAYTIME)
     Route: 065
  6. THIAMINE. [Concomitant]
     Active Substance: THIAMINE
     Indication: VITAMIN SUPPLEMENTATION
  7. DISULFIRAM. [Suspect]
     Active Substance: DISULFIRAM
     Indication: ALCOHOLISM
     Dosage: 500 MG, DAILY (AFTER ONE WEEK OF 250 MG)
     Route: 065
  8. LORAZEPAM. [Concomitant]
     Active Substance: LORAZEPAM
     Indication: PRODUCT USED FOR UNKNOWN INDICATION
     Dosage: 1 MG, DAILY
     Route: 065

REACTIONS (1)
  - Generalised tonic-clonic seizure [Recovered/Resolved]
